FAERS Safety Report 25637012 (Version 1)
Quarter: 2025Q3

REPORT INFORMATION
  Report Type: Spontaneous
  Country: CN (occurrence: CN)
  Receive Date: 20250804
  Receipt Date: 20250804
  Transmission Date: 20251020
  Serious: Yes (Other)
  Sender: BAXTER
  Company Number: None

PATIENT
  Age: 52 Year
  Sex: Female
  Weight: 65 kg

DRUGS (2)
  1. CYCLOPHOSPHAMIDE [Suspect]
     Active Substance: CYCLOPHOSPHAMIDE
     Indication: Breast cancer female
     Dosage: 0.85 G, QD, IVGTT
     Route: 041
     Dates: start: 20250711, end: 20250711
  2. DOCETAXEL [Suspect]
     Active Substance: DOCETAXEL
     Indication: Breast cancer female
     Dosage: 120 MG,QD IVGTT
     Route: 041
     Dates: start: 20250711, end: 20250711

REACTIONS (7)
  - Depressed level of consciousness [Unknown]
  - Decreased appetite [Unknown]
  - Palmar-plantar erythrodysaesthesia syndrome [Unknown]
  - Limb discomfort [Unknown]
  - Hypoaesthesia [Recovering/Resolving]
  - Pain in extremity [Unknown]
  - Nausea [Unknown]

NARRATIVE: CASE EVENT DATE: 20250712
